FAERS Safety Report 22765721 (Version 2)
Quarter: 2023Q4

REPORT INFORMATION
  Report Type: Other
  Country: CA (occurrence: CA)
  Receive Date: 20230731
  Receipt Date: 20231109
  Transmission Date: 20240110
  Serious: Yes (Hospitalization)
  Sender: FDA-Public Use
  Company Number: CA-ASTELLAS-2023US022443

PATIENT
  Age: 46 Year
  Sex: Female

DRUGS (2)
  1. MYRBETRIQ [Suspect]
     Active Substance: MIRABEGRON
     Indication: Hypertonic bladder
     Dosage: 50 MG, ONCE DAILY (EXTENDED RELEASE)
     Route: 048
     Dates: start: 20230116, end: 20230318
  2. CARBAMAZEPINE [Suspect]
     Active Substance: CARBAMAZEPINE
     Indication: Pain
     Route: 048
     Dates: start: 20230116, end: 20230318

REACTIONS (4)
  - Eosinophil count increased [Recovering/Resolving]
  - Alanine aminotransferase increased [Recovering/Resolving]
  - Pyrexia [Recovering/Resolving]
  - Rash [Recovering/Resolving]

NARRATIVE: CASE EVENT DATE: 20230303
